FAERS Safety Report 23427441 (Version 2)
Quarter: 2024Q1

REPORT INFORMATION
  Report Type: Spontaneous
  Country: CA (occurrence: CA)
  Receive Date: 20240122
  Receipt Date: 20240129
  Transmission Date: 20240409
  Serious: Yes (Other)
  Sender: FDA-Public Use
  Company Number: CA-SUN PHARMACEUTICAL INDUSTRIES LTD-2024R1-428320

PATIENT
  Sex: Male

DRUGS (1)
  1. OXCARBAZEPINE [Suspect]
     Active Substance: OXCARBAZEPINE
     Indication: Frontotemporal dementia
     Dosage: TITRATED SLOWLY TO 2400 MG IN THREE DIVIDED DOSES
     Route: 065

REACTIONS (1)
  - Therapy non-responder [Unknown]
